FAERS Safety Report 24035340 (Version 1)
Quarter: 2024Q3

REPORT INFORMATION
  Report Type: Spontaneous
  Country: JP (occurrence: JP)
  Receive Date: 20240701
  Receipt Date: 20240701
  Transmission Date: 20241017
  Serious: Yes (Other)
  Sender: MERCK
  Company Number: JP-MSD-M2024-24659

PATIENT
  Age: 71 Year
  Sex: Male

DRUGS (7)
  1. KEYTRUDA [Suspect]
     Active Substance: PEMBROLIZUMAB
     Indication: Renal cell carcinoma
     Dosage: 200 MILLIGRAM, Q3W
     Route: 041
     Dates: start: 20230426
  2. AXITINIB [Suspect]
     Active Substance: AXITINIB
     Indication: Renal cell carcinoma
     Dosage: 10 MILLIGRAM
     Route: 065
     Dates: start: 20230426, end: 20230514
  3. AXITINIB [Suspect]
     Active Substance: AXITINIB
     Dosage: 6 MILLIGRAM
     Route: 065
     Dates: start: 20230524, end: 20230526
  4. AXITINIB [Suspect]
     Active Substance: AXITINIB
     Dosage: 2 MILLIGRAM
     Route: 065
     Dates: start: 20230602, end: 202306
  5. AXITINIB [Suspect]
     Active Substance: AXITINIB
     Dosage: 4 MILLIGRAM
     Route: 065
     Dates: start: 20230607, end: 20231031
  6. AXITINIB [Suspect]
     Active Substance: AXITINIB
     Dosage: UNK
     Route: 065
     Dates: start: 20231121
  7. AXITINIB [Suspect]
     Active Substance: AXITINIB
     Dosage: 4 MILLIGRAM
     Route: 065
     Dates: start: 20240423

REACTIONS (7)
  - Cushing^s syndrome [Unknown]
  - Blood corticotrophin increased [Not Recovered/Not Resolved]
  - Headache [Unknown]
  - Pyrexia [Unknown]
  - Blood thyroid stimulating hormone increased [Unknown]
  - Diarrhoea [Unknown]
  - Decreased appetite [Unknown]

NARRATIVE: CASE EVENT DATE: 20230101
